FAERS Safety Report 21174780 (Version 3)
Quarter: 2022Q4

REPORT INFORMATION
  Report Type: Report from Study
  Country: US (occurrence: US)
  Receive Date: 20220805
  Receipt Date: 20221011
  Transmission Date: 20230113
  Serious: Yes (Hospitalization)
  Sender: FDA-Public Use
  Company Number: US-NOVARTISPH-NVSC2022US174501

PATIENT
  Sex: Female

DRUGS (1)
  1. PIQRAY [Suspect]
     Active Substance: ALPELISIB
     Indication: Breast cancer
     Dosage: 300 MG, QD
     Route: 048
     Dates: start: 202207

REACTIONS (6)
  - Seizure [Unknown]
  - Abnormal behaviour [Unknown]
  - Hyperglycaemia [Unknown]
  - Dysstasia [Unknown]
  - Asthenia [Unknown]
  - Diarrhoea [Unknown]
